FAERS Safety Report 16121800 (Version 2)
Quarter: 2019Q2

REPORT INFORMATION
  Report Type: Report from Study
  Country: KR (occurrence: KR)
  Receive Date: 20190327
  Receipt Date: 20190430
  Transmission Date: 20190711
  Serious: Yes (Hospitalization, Other)
  Sender: FDA-Public Use
  Company Number: KR-JAZZ-2019-KR-004021

PATIENT
  Age: 4 Year
  Sex: Female

DRUGS (22)
  1. URSA SOFTGEL [Concomitant]
     Indication: PROPHYLAXIS
     Dosage: 100 MG, TID
     Route: 048
     Dates: start: 20190305
  2. SPIRONOLACTONE. [Concomitant]
     Active Substance: SPIRONOLACTONE
     Indication: DIURETIC THERAPY
     Dosage: 25 MG, BID
     Dates: start: 20190312, end: 20190316
  3. MYCAMINE [Concomitant]
     Active Substance: MICAFUNGIN SODIUM
     Indication: ANTIBIOTIC THERAPY
     Dosage: 20 MG, QD
     Route: 042
     Dates: start: 20190305, end: 20190405
  4. DEFITELIO [Suspect]
     Active Substance: DEFIBROTIDE SODIUM
     Indication: VENOOCCLUSIVE DISEASE
     Dosage: 100 MG, QID
     Dates: start: 20190310, end: 20190317
  5. MOVELOXIN [Concomitant]
     Indication: ANTIBIOTIC THERAPY
     Dosage: 200 MG, QD
     Route: 042
     Dates: start: 20190305, end: 20190319
  6. SEPTRIN [Concomitant]
     Active Substance: SULFAMETHOXAZOLE\TRIMETHOPRIM
     Indication: ANTIBIOTIC THERAPY
     Dosage: 240 MG, BID
     Route: 048
     Dates: start: 20190316
  7. PETHIDINE [Concomitant]
     Active Substance: MEPERIDINE
     Indication: ABDOMINAL PAIN
     Dosage: 0.25 MG, QD
     Route: 042
     Dates: start: 20190311, end: 20190315
  8. ACICLOVIR [Concomitant]
     Active Substance: ACYCLOVIR
     Indication: ANTIVIRAL TREATMENT
     Dosage: 180 MG, TID
     Route: 042
     Dates: start: 20190305
  9. LENOGRASTIM [Concomitant]
     Active Substance: LENOGRASTIM
     Indication: COLONY STIMULATING FACTOR THERAPY
     Dosage: 100 ?G, QD
     Route: 042
     Dates: start: 20190305, end: 20190312
  10. DEFITELIO [Suspect]
     Active Substance: DEFIBROTIDE SODIUM
     Dosage: 100 MG, BID
     Dates: start: 20190320, end: 20190320
  11. DEFITELIO [Suspect]
     Active Substance: DEFIBROTIDE SODIUM
     Dosage: 100 MG, QID
     Dates: start: 20190322, end: 20190325
  12. MIDAZOLAM [Concomitant]
     Active Substance: MIDAZOLAM HYDROCHLORIDE
     Indication: SEDATION
     Dosage: 3 MG, QD
     Route: 042
     Dates: start: 20190311, end: 20190317
  13. TRAMADOL. [Concomitant]
     Active Substance: TRAMADOL
     Indication: ABDOMINAL PAIN
     Dosage: 50 MG, TID
     Route: 048
     Dates: start: 20190313, end: 20190315
  14. FENTADUR [Concomitant]
     Indication: ABDOMINAL PAIN
     Dosage: 12 UG/H,QD
     Dates: start: 20190313
  15. MAXIPIME [Concomitant]
     Active Substance: CEFEPIME HYDROCHLORIDE
     Indication: ANTIBIOTIC THERAPY
     Dosage: 1 G, TID
     Route: 042
     Dates: start: 20190305
  16. FUROSEMIDE. [Concomitant]
     Active Substance: FUROSEMIDE
     Indication: DIURETIC THERAPY
     Dosage: 10 MG, BID
     Route: 042
     Dates: start: 20190305
  17. LEVOMELS [Concomitant]
     Indication: PROPHYLAXIS
     Dosage: 165 MG, BID
     Route: 042
     Dates: start: 20190312, end: 20190327
  18. DEFITELIO [Suspect]
     Active Substance: DEFIBROTIDE SODIUM
     Dosage: 100 MG, TID
     Dates: start: 20190321, end: 20190321
  19. DEFITELIO [Suspect]
     Active Substance: DEFIBROTIDE SODIUM
     Dosage: 100 MG, QID
     Dates: start: 20190402
  20. PROGRAF [Concomitant]
     Active Substance: TACROLIMUS\TACROLIMUS ANHYDROUS
     Indication: IMMUNOSUPPRESSANT DRUG THERAPY
     Dosage: 0.5 MG, QD
     Route: 042
     Dates: start: 20190305
  21. TATHION [Concomitant]
     Active Substance: GLUTATHIONE
     Indication: PROPHYLAXIS
     Dosage: 33 MG, BID
     Route: 042
     Dates: start: 20190312, end: 20190315
  22. TEICON [Concomitant]
     Indication: ANTIBIOTIC THERAPY
     Dosage: 180 MG, QD
     Route: 042
     Dates: start: 20190305, end: 20190329

REACTIONS (4)
  - Haematemesis [Recovered/Resolved]
  - Haematochezia [Recovered/Resolved]
  - Pleural effusion [Recovered/Resolved]
  - Melaena [Recovered/Resolved]

NARRATIVE: CASE EVENT DATE: 20190315
